FAERS Safety Report 5821586-6 (Version None)
Quarter: 2008Q3

REPORT INFORMATION
  Report Type: 
  Country: None (occurrence: None)
  Receive Date: 20080724
  Receipt Date: 20080722
  Transmission Date: 20090109
  Serious: Yes (Hospitalization)
  Sender: FDA-Public Use
  Company Number: PHHO1999DE03594

PATIENT
  Sex: Female
  Weight: 78 kg

DRUGS (3)
  1. RAD 666 RAD+ [Suspect]
     Dosage: 1.5 MG, BID
     Route: 048
     Dates: start: 19981003, end: 19990721
  2. AZATHIOPRINE [Concomitant]
  3. NEORAL [Suspect]

REACTIONS (3)
  - NEPHROPATHY TOXIC [None]
  - RENAL FAILURE ACUTE [None]
  - URINARY TRACT INFECTION [None]
